FAERS Safety Report 18418366 (Version 2)
Quarter: 2020Q4

REPORT INFORMATION
  Report Type: Spontaneous
  Country: RU (occurrence: RU)
  Receive Date: 20201023
  Receipt Date: 20201214
  Transmission Date: 20210114
  Serious: Yes (Other)
  Sender: FDA-Public Use
  Company Number: RU-SUN PHARMACEUTICAL INDUSTRIES LTD-2020R1-264630

PATIENT
  Age: 22 Year
  Sex: Male
  Weight: 62 kg

DRUGS (2)
  1. SOTRET [Suspect]
     Active Substance: ISOTRETINOIN
     Indication: ACNE
     Dosage: 30 MILLIGRAM/KILOGRAM, DAILY
     Route: 048
     Dates: start: 20200829
  2. SOTRET [Suspect]
     Active Substance: ISOTRETINOIN
     Dosage: 50 MILLIGRAM/KILOGRAM, DAILY
     Route: 048
     Dates: start: 20200829

REACTIONS (1)
  - Blood pressure increased [Not Recovered/Not Resolved]
